FAERS Safety Report 24016740 (Version 3)
Quarter: 2024Q3

REPORT INFORMATION
  Report Type: Spontaneous
  Country: JP (occurrence: JP)
  Receive Date: 20240626
  Receipt Date: 20240917
  Transmission Date: 20241016
  Serious: Yes (Hospitalization, Other)
  Sender: PFIZER
  Company Number: JP-ONO-2024JP013367

PATIENT
  Age: 72 Year
  Sex: Male
  Weight: 63.7 kg

DRUGS (10)
  1. BRAFTOVI [Suspect]
     Active Substance: ENCORAFENIB
     Indication: Colon cancer
     Dosage: 300 MG, EVERYDAY
     Route: 048
     Dates: start: 20240220, end: 20240423
  2. MEKTOVI [Suspect]
     Active Substance: BINIMETINIB
     Indication: Colon cancer
     Dosage: 45 MG, Q12H
     Route: 048
     Dates: start: 20240220, end: 20240423
  3. CETUXIMAB [Concomitant]
     Active Substance: CETUXIMAB
     Indication: Colon cancer
     Dosage: 660 MG
     Route: 041
     Dates: start: 20240220, end: 20240220
  4. CETUXIMAB [Concomitant]
     Active Substance: CETUXIMAB
     Dosage: 400 MG, QW
     Route: 041
     Dates: start: 20240227, end: 20240416
  5. OXYCODONE HYDROCHLORIDE [Concomitant]
     Active Substance: OXYCODONE HYDROCHLORIDE
     Dosage: 10 MG, Q12H (FORMULATION: SLOW RELEASE CAPSULES)
     Route: 048
     Dates: start: 20240220, end: 20240701
  6. MAGNESIUM OXIDE [Concomitant]
     Active Substance: MAGNESIUM OXIDE
     Dosage: 500 MG, Q12H
     Route: 048
     Dates: start: 20230802
  7. AMLODIPINE [Concomitant]
     Active Substance: AMLODIPINE BESYLATE
     Dosage: 2.5 MG, EVERYDAY (FORMULATION: TABLET, ORALLY DISINTEGRATING)
     Route: 048
     Dates: start: 20230805, end: 20240608
  8. AMLODIPINE\TELMISARTAN [Concomitant]
     Active Substance: AMLODIPINE\TELMISARTAN
     Dosage: UNK, EVERYDAY
     Route: 048
     Dates: start: 20230912, end: 20240608
  9. LOCOID [Concomitant]
     Active Substance: HYDROCORTISONE BUTYRATE
     Indication: Prophylaxis
     Dosage: UNK
     Route: 062
     Dates: start: 20240220
  10. MYSER [DIFLUPREDNATE] [Concomitant]
     Indication: Prophylaxis
     Dosage: UNK
     Route: 062
     Dates: start: 20240220

REACTIONS (8)
  - Submandibular abscess [Recovered/Resolved]
  - Subcutaneous abscess [Recovered/Resolved]
  - Cerebral infarction [Not Recovered/Not Resolved]
  - Delirium [Unknown]
  - Neoplasm progression [Unknown]
  - Confusional state [Unknown]
  - Judgement impaired [Unknown]
  - Periodontitis [Unknown]

NARRATIVE: CASE EVENT DATE: 20240423
